FAERS Safety Report 8692207 (Version 3)
Quarter: 2013Q3

REPORT INFORMATION
  Report Type: Report from Study
  Country: JP (occurrence: JP)
  Receive Date: 20120730
  Receipt Date: 20130821
  Transmission Date: 20140515
  Serious: Yes (Hospitalization, Other)
  Sender: FDA-Public Use
  Company Number: JP-SHIRE-ALL1-2012-03597

PATIENT
  Age: 66 Year
  Sex: Female

DRUGS (17)
  1. 405 (LANTHANUM CARBONATE) [Suspect]
     Indication: HYPERPHOSPHATAEMIA
     Dosage: 750 MG, UNKNOWN (750 MG TOTAL DAILY DOSE)
     Route: 048
     Dates: start: 20090601, end: 20110620
  2. 405 (LANTHANUM CARBONATE) [Suspect]
     Dosage: 750 MG, UNKNOWN (750 MG TOTAL DAILY DOSE)
     Route: 048
     Dates: start: 20111206, end: 20120601
  3. CALTAN [Concomitant]
     Indication: HYPERPHOSPHATAEMIA
     Dosage: 3000 MG, UNKNOWN
     Route: 048
  4. CALTAN [Concomitant]
     Dosage: 4500 MG, UNKNOWN
     Route: 048
     Dates: start: 20100705, end: 20110508
  5. CALTAN [Concomitant]
     Dosage: 1500 MG, UNKNOWN
     Route: 048
     Dates: start: 20110509, end: 20110829
  6. CALTAN [Concomitant]
     Dosage: 1500 MG, UNKNOWN
     Route: 048
     Dates: start: 20111021, end: 20111206
  7. EPOGIN [Concomitant]
     Indication: PRODUCT USED FOR UNKNOWN INDICATION
     Dosage: 4500 IU, 1X/WEEK
     Route: 041
  8. FESIN                              /00023550/ [Concomitant]
     Indication: PRODUCT USED FOR UNKNOWN INDICATION
     Dosage: 1 DF, 1X/WEEK
     Route: 042
  9. RHUBARB DRY EXTRACT [Concomitant]
     Indication: PRODUCT USED FOR UNKNOWN INDICATION
     Dosage: 3 G, UNKNOWN
     Route: 048
  10. EURODIN                            /00425901/ [Concomitant]
     Indication: PRODUCT USED FOR UNKNOWN INDICATION
     Dosage: 2 MG, UNKNOWN
     Route: 048
  11. PLETAAL [Concomitant]
     Indication: PRODUCT USED FOR UNKNOWN INDICATION
     Dosage: 200 MG, UNKNOWN
     Route: 048
  12. BAYASPIRIN [Concomitant]
     Indication: PRODUCT USED FOR UNKNOWN INDICATION
     Dosage: 100 MG, UNKNOWN
     Route: 048
  13. WARFARIN POTASSIUM [Concomitant]
     Indication: PRODUCT USED FOR UNKNOWN INDICATION
     Dosage: 2 MG, UNKNOWN
     Route: 048
  14. AZEPTIN                            /00884002/ [Concomitant]
     Indication: PRODUCT USED FOR UNKNOWN INDICATION
     Dosage: 2 DF, UNKNOWN
     Route: 048
  15. RISUMIC [Concomitant]
     Indication: PRODUCT USED FOR UNKNOWN INDICATION
     Dosage: 20 MG, UNKNOWN
     Route: 048
  16. POVIDONE-IODINE [Concomitant]
     Indication: LOCALISED INFECTION
     Dosage: UNK, UNKNOWN
     Route: 065
     Dates: start: 20110512, end: 20110512
  17. NADIFLOXACIN [Concomitant]
     Indication: LOCALISED INFECTION
     Dosage: UNK, UNKNOWN
     Route: 065
     Dates: start: 20110512, end: 20110512

REACTIONS (4)
  - Melaena [Recovering/Resolving]
  - Haematoma [Recovering/Resolving]
  - Visual acuity reduced [Unknown]
  - Muscular weakness [Not Recovered/Not Resolved]
